FAERS Safety Report 10983931 (Version 1)
Quarter: 2015Q2

REPORT INFORMATION
  Report Type: Spontaneous
  Country: CA (occurrence: None)
  Receive Date: 20150401
  Receipt Date: 20150401
  Transmission Date: 20150821
  Serious: Yes (Other)
  Sender: FDA-Public Use
  Company Number: NSR_02016_2015

PATIENT
  Age: 48 Year
  Sex: Female

DRUGS (1)
  1. HYDROXYZINE (HYDROXYZINE) [Suspect]
     Active Substance: HYDROXYZINE HYDROCHLORIDE
     Indication: PRURITUS GENERALISED
     Dosage: 4 DAYS, DF ORAL
     Route: 048

REACTIONS (1)
  - Acute generalised exanthematous pustulosis [None]
